FAERS Safety Report 5382061-9 (Version None)
Quarter: 2007Q3

REPORT INFORMATION
  Report Type: 
  Country: None (occurrence: None)
  Receive Date: 20070709
  Receipt Date: 20070626
  Transmission Date: 20080115
  Serious: Yes (Other)
  Sender: FDA-Public Use
  Company Number: PHBS2007NL10809

PATIENT
  Sex: Female

DRUGS (5)
  1. SLOW-K [Suspect]
     Dosage: 600 MG, UNK
     Route: 048
     Dates: start: 20040501
  2. ISOSORBIDE DINITRATE [Concomitant]
  3. QUINSAPRIL [Concomitant]
  4. DICLOFENAC [Concomitant]
  5. NITRAZEPAM [Concomitant]

REACTIONS (2)
  - CREATININE RENAL CLEARANCE DECREASED [None]
  - RENAL IMPAIRMENT [None]
